FAERS Safety Report 8313071-7 (Version None)
Quarter: 2012Q2

REPORT INFORMATION
  Report Type: 
  Country: None (occurrence: None)
  Receive Date: 20120426
  Receipt Date: 20120419
  Transmission Date: 20120825
  Serious: Yes (Other)
  Sender: FDA-Public Use
  Company Number: JP-PFIZER INC-2012054098

PATIENT
  Age: 50 Year
  Sex: Female

DRUGS (1)
  1. AMLODIPINE BESILATE [Suspect]
     Dosage: 2.5MG, DAILY
     Dates: start: 20111217

REACTIONS (2)
  - MENSTRUAL DISORDER [None]
  - POSTMENOPAUSAL HAEMORRHAGE [None]
